FAERS Safety Report 17478649 (Version 2)
Quarter: 2020Q1

REPORT INFORMATION
  Report Type: Spontaneous
  Country: JP (occurrence: JP)
  Receive Date: 20200228
  Receipt Date: 20200304
  Transmission Date: 20200409
  Serious: Yes (Other)
  Sender: FDA-Public Use
  Company Number: JP-BAYER-2020-034094

PATIENT
  Sex: Male

DRUGS (1)
  1. XOFIGO [Suspect]
     Active Substance: RADIUM RA-223 DICHLORIDE
     Indication: HORMONE-REFRACTORY PROSTATE CANCER
     Route: 042

REACTIONS (7)
  - Pancytopenia [None]
  - Metastases to bone [None]
  - Diarrhoea [None]
  - Hormone-refractory prostate cancer [None]
  - Decreased appetite [None]
  - Spinal cord compression [None]
  - Gait disturbance [Recovering/Resolving]
